FAERS Safety Report 6126615-0 (Version None)
Quarter: 2009Q1

REPORT INFORMATION
  Report Type: 
  Country: None (occurrence: None)
  Receive Date: 20090320
  Receipt Date: 20090306
  Transmission Date: 20090719
  Serious: Yes (Hospitalization)
  Sender: FDA-Public Use
  Company Number: CH-PFIZER INC-2009179637

PATIENT

DRUGS (7)
  1. ALDACTONE [Suspect]
     Dosage: UNK
     Route: 048
  2. BONIDON [Suspect]
     Indication: PAIN
     Dosage: UNK
     Route: 048
     Dates: start: 20081013, end: 20081027
  3. TORASEMIDE SODIUM [Suspect]
     Dosage: UNK
     Route: 048
  4. INDERAL [Suspect]
     Dosage: UNK
     Route: 048
  5. NEXIUM [Concomitant]
     Route: 048
  6. REMERON [Concomitant]
     Route: 048
  7. STILNOX [Concomitant]
     Route: 048

REACTIONS (5)
  - ABDOMINAL PAIN [None]
  - CONFUSIONAL STATE [None]
  - ENCEPHALOPATHY [None]
  - MEMORY IMPAIRMENT [None]
  - NAUSEA [None]
